FAERS Safety Report 6779098-1 (Version None)
Quarter: 2010Q2

REPORT INFORMATION
  Report Type: 
  Country: None (occurrence: None)
  Receive Date: 20100618
  Receipt Date: 20100616
  Transmission Date: 20101027
  Serious: Yes (Life-Threatening, Other)
  Sender: FDA-Public Use
  Company Number: JP-ELI_LILLY_AND_COMPANY-JP201006004153

PATIENT
  Age: 60 Year
  Sex: Male
  Weight: 78 kg

DRUGS (14)
  1. PEMETREXED [Suspect]
     Indication: LUNG ADENOCARCINOMA STAGE IV
     Dosage: 500 MG/M2, OTHER
     Route: 042
     Dates: start: 20090924, end: 20090924
  2. CISPLATIN [Concomitant]
     Indication: LUNG ADENOCARCINOMA STAGE IV
     Dosage: 75 MG/M2, OTHER
     Route: 042
     Dates: start: 20090924, end: 20090924
  3. PANVITAN [Concomitant]
     Dosage: 1 G, DAILY (1/D)
     Route: 048
     Dates: start: 20090917, end: 20091118
  4. HYDROXOCOBALAMIN ACETATE [Concomitant]
     Dosage: 1 MG, UNK
     Route: 030
     Dates: start: 20090917, end: 20090917
  5. KYTRIL [Concomitant]
     Route: 042
     Dates: start: 20090924, end: 20090924
  6. DEXAMETHASONE SODIUM PHOSPHATE [Concomitant]
     Route: 042
     Dates: start: 20090925, end: 20090926
  7. MANNITOL [Concomitant]
     Indication: PROPHYLAXIS
     Route: 042
     Dates: start: 20090924, end: 20090924
  8. LASIX [Concomitant]
     Indication: PROPHYLAXIS
     Route: 042
     Dates: start: 20090924, end: 20090924
  9. TELEMINSOFT [Concomitant]
     Indication: CONSTIPATION
     Route: 054
     Dates: start: 20090926, end: 20090926
  10. MAGMITT [Concomitant]
     Indication: CONSTIPATION
     Route: 048
     Dates: start: 20090927, end: 20091001
  11. LACTEC [Concomitant]
     Indication: RENAL IMPAIRMENT
     Route: 042
     Dates: start: 20091001, end: 20091002
  12. SOLDEM 3A [Concomitant]
     Indication: RENAL IMPAIRMENT
     Route: 042
     Dates: start: 20091001, end: 20091002
  13. SOLDEM 3 [Concomitant]
     Indication: RENAL IMPAIRMENT
     Route: 042
     Dates: start: 20091002, end: 20091004
  14. AMINO ACIDS/CARBOHYDRATES/MINERALS/VITAMINS, [Concomitant]
     Indication: RENAL IMPAIRMENT
     Route: 042
     Dates: start: 20091002, end: 20091009

REACTIONS (4)
  - DISSEMINATED INTRAVASCULAR COAGULATION [None]
  - ENTEROCOCCAL SEPSIS [None]
  - INFLUENZA [None]
  - PLATELET COUNT DECREASED [None]
